FAERS Safety Report 19089974 (Version 3)
Quarter: 2021Q2

REPORT INFORMATION
  Report Type: Report from Study
  Country: BR (occurrence: BR)
  Receive Date: 20210404
  Receipt Date: 20210602
  Transmission Date: 20210717
  Serious: Yes (Other)
  Sender: FDA-Public Use
  Company Number: NVSC2021BR075644

PATIENT
  Age: 76 Year
  Sex: Male
  Weight: 76 kg

DRUGS (10)
  1. DUO TRAVATAN [Suspect]
     Active Substance: TIMOLOL MALEATE\TRAVOPROST
     Indication: OCULAR HYPERTENSION
     Dosage: 1 DF, QD (1 DROP IN EACH EYE, DAILY IN THE MORNING, FROM A LONG TIME AGO)
     Route: 031
  2. TRAVATAN [Suspect]
     Active Substance: TRAVOPROST
     Indication: OCULAR HYPERTENSION
  3. TIMOLOL MALEATE. [Concomitant]
     Active Substance: TIMOLOL MALEATE
     Indication: GLAUCOMA
     Dosage: 1 DF, QD (1 DROP IN EACH EYE, DAILY IN THE MORNING, FROM A LONG TIME AGO)
     Route: 031
  4. DIOVAN HCT [Suspect]
     Active Substance: HYDROCHLOROTHIAZIDE\VALSARTAN
     Dosage: 1 DF (320/25 MG), QD
     Route: 048
     Dates: start: 20210325
  5. DUO TRAVATAN [Suspect]
     Active Substance: TIMOLOL MALEATE\TRAVOPROST
     Indication: GLAUCOMA
  6. TIMOLOL MALEATE. [Concomitant]
     Active Substance: TIMOLOL MALEATE
     Indication: OCULAR HYPERTENSION
  7. EXFORGE HCT [Suspect]
     Active Substance: AMLODIPINE BESYLATE\HYDROCHLOROTHIAZIDE\VALSARTAN
     Indication: HYPERTENSION
     Dosage: 1 DF (320/25/10 MG), QD (APPROXIMATELY 5 OR 6 MONTHS)
     Route: 048
     Dates: end: 20210326
  8. TRAVATAN [Suspect]
     Active Substance: TRAVOPROST
     Indication: GLAUCOMA
     Dosage: 1 DF, QD (1 DROP IN EACH EYE, DAILY IN THE MORNING, FROM A LONG TIME AGO)
     Route: 031
  9. DIOVAN HCT [Suspect]
     Active Substance: HYDROCHLOROTHIAZIDE\VALSARTAN
     Indication: PRODUCT USED FOR UNKNOWN INDICATION
     Dosage: 1 DF (160/12.5MG), QD (4 MONTHS AGO)
     Route: 048
     Dates: start: 202002
  10. DIOVAN [Concomitant]
     Active Substance: VALSARTAN
     Indication: HYPERTENSION
     Dosage: 160 MG, QD (MORE THAN A YEAR AGO)
     Route: 048

REACTIONS (9)
  - Peripheral swelling [Recovered/Resolved]
  - Spinal cord disorder [Not Recovered/Not Resolved]
  - Muscular weakness [Not Recovered/Not Resolved]
  - Hypertension [Not Recovered/Not Resolved]
  - Pruritus [Not Recovered/Not Resolved]
  - Therapeutic product effect incomplete [Recovered/Resolved]
  - Erectile dysfunction [Recovered/Resolved]
  - Libido disorder [Recovered/Resolved]
  - Arthralgia [Recovered/Resolved]

NARRATIVE: CASE EVENT DATE: 2018
